FAERS Safety Report 12589931 (Version 1)
Quarter: 2016Q3

REPORT INFORMATION
  Report Type: Spontaneous
  Country: US (occurrence: US)
  Receive Date: 20160725
  Receipt Date: 20160725
  Transmission Date: 20161109
  Serious: No
  Sender: FDA-Public Use
  Company Number: US-ENDO PHARMACEUTICALS INC.-2015-003614

PATIENT
  Sex: Female
  Weight: 69.46 kg

DRUGS (3)
  1. ATENOLOL. [Concomitant]
     Active Substance: ATENOLOL
     Indication: ARRHYTHMIA
  2. HYDROCORTISONE TABLETS 10MG [Suspect]
     Active Substance: HYDROCORTISONE
     Indication: BLOOD CORTISOL DECREASED
     Route: 065
     Dates: start: 2013
  3. PREDNISONE TABLETS 2.5MG [Suspect]
     Active Substance: PREDNISONE
     Indication: BLOOD CORTISOL DECREASED
     Route: 048
     Dates: start: 2013

REACTIONS (4)
  - Blood cortisol decreased [Not Recovered/Not Resolved]
  - Glaucoma [Not Recovered/Not Resolved]
  - Nausea [Not Recovered/Not Resolved]
  - Abnormal loss of weight [Recovered/Resolved]

NARRATIVE: CASE EVENT DATE: 2013
